FAERS Safety Report 7783783-2 (Version None)
Quarter: 2011Q3

REPORT INFORMATION
  Report Type: 
  Country: None (occurrence: None)
  Receive Date: 20110928
  Receipt Date: 20110524
  Transmission Date: 20111222
  Serious: No
  Sender: FDA-Public Use
  Company Number: US-BAYER-2011-045757

PATIENT
  Sex: Female
  Weight: 55 kg

DRUGS (4)
  1. SYNTHROID [Concomitant]
  2. ACETYLSALICYLIC ACID SRT [Concomitant]
  3. PRAVASTATIN [Concomitant]
  4. ALEVE (CAPLET) [Suspect]

REACTIONS (3)
  - OCULAR HYPERAEMIA [None]
  - EYE PRURITUS [None]
  - EYE DISORDER [None]
